FAERS Safety Report 24049656 (Version 1)
Quarter: 2024Q3

REPORT INFORMATION
  Report Type: Spontaneous
  Country: US (occurrence: US)
  Receive Date: 20240704
  Receipt Date: 20240704
  Transmission Date: 20241016
  Serious: Yes (Other)
  Sender: RANBAXY
  Company Number: US-SUN PHARMACEUTICAL INDUSTRIES LTD-2024R1-454460

PATIENT
  Age: 68 Year
  Sex: Female

DRUGS (7)
  1. PREDNISONE [Suspect]
     Active Substance: PREDNISONE
     Indication: Bronchopulmonary aspergillosis allergic
     Route: 065
  2. PREDNISONE [Suspect]
     Active Substance: PREDNISONE
     Dosage: DOWN TO 2.5 MG EVERY OTHER DAY
     Route: 065
  3. ITRACONAZOLE [Concomitant]
     Active Substance: ITRACONAZOLE
     Indication: Bronchopulmonary aspergillosis allergic
     Route: 065
  4. VORICONAZOLE [Concomitant]
     Active Substance: VORICONAZOLE
     Indication: Bronchopulmonary aspergillosis allergic
     Route: 065
  5. OMALIZUMAB [Concomitant]
     Active Substance: OMALIZUMAB
     Indication: Bronchopulmonary aspergillosis allergic
     Route: 065
  6. DUPILUMAB [Concomitant]
     Active Substance: DUPILUMAB
     Indication: Bronchopulmonary aspergillosis allergic
     Route: 065
  7. MEPOLIZUMAB [Concomitant]
     Active Substance: MEPOLIZUMAB
     Indication: Bronchopulmonary aspergillosis allergic
     Route: 065

REACTIONS (4)
  - Therapeutic response decreased [Unknown]
  - Condition aggravated [Unknown]
  - Dermatitis psoriasiform [Unknown]
  - Arthralgia [Recovering/Resolving]
